FAERS Safety Report 10426959 (Version 1)
Quarter: 2014Q3

REPORT INFORMATION
  Report Type: Spontaneous
  Country: BR (occurrence: BR)
  Receive Date: 20140903
  Receipt Date: 20140903
  Transmission Date: 20150326
  Serious: Yes (Other)
  Sender: FDA-Public Use
  Company Number: BR-PFIZER INC-2014242279

PATIENT
  Age: 75 Year
  Sex: Female

DRUGS (2)
  1. PRISTIQ EXTENDED RELEASE [Suspect]
     Active Substance: DESVENLAFAXINE SUCCINATE
     Indication: ANTIDEPRESSANT THERAPY
     Dosage: 100 MG, DAILY
     Route: 048
     Dates: start: 2013, end: 20140818
  2. PRISTIQ EXTENDED RELEASE [Suspect]
     Active Substance: DESVENLAFAXINE SUCCINATE
     Dosage: 150 MG, DAILY
     Route: 048
     Dates: start: 20140819

REACTIONS (5)
  - Feeling abnormal [Unknown]
  - Suicidal ideation [Unknown]
  - Anxiety [Unknown]
  - Anhedonia [Unknown]
  - Head discomfort [Unknown]
